FAERS Safety Report 6286105-1 (Version None)
Quarter: 2009Q3

REPORT INFORMATION
  Report Type: 
  Country: None (occurrence: None)
  Receive Date: 20090728
  Receipt Date: 20090716
  Transmission Date: 20100115
  Serious: Yes (Death, Hospitalization)
  Sender: FDA-Public Use
  Company Number: DE-ROCHE-600787

PATIENT
  Sex: Male
  Weight: 62 kg

DRUGS (1)
  1. XELODA [Suspect]
     Dosage: 3 CYCLES COMPLETED
     Route: 048
     Dates: start: 20080408, end: 20080513

REACTIONS (1)
  - MALIGNANT NEOPLASM PROGRESSION [None]
